FAERS Safety Report 12956755 (Version 1)
Quarter: 2016Q4

REPORT INFORMATION
  Report Type: Spontaneous
  Country: TR (occurrence: TR)
  Receive Date: 20161118
  Receipt Date: 20161118
  Transmission Date: 20170207
  Serious: Yes (Other)
  Sender: FDA-Public Use
  Company Number: ALCN2016TR007698

PATIENT
  Age: 32 Year
  Sex: Male

DRUGS (7)
  1. PROPAMIDINE ISETIONATE [Suspect]
     Active Substance: PROPAMIDINE ISETHIONATE
     Indication: BACTERIAL INFECTION
  2. ITRACONAZOLE. [Concomitant]
     Active Substance: ITRACONAZOLE
     Indication: BACTERIAL INFECTION
  3. MOXIFLOXACIN. [Suspect]
     Active Substance: MOXIFLOXACIN
     Indication: BACTERIAL INFECTION
     Dosage: 6 DF, BID
     Route: 047
  4. PROPAMIDINE ISETIONATE [Suspect]
     Active Substance: PROPAMIDINE ISETHIONATE
     Indication: ACANTHAMOEBA KERATITIS
     Dosage: 1 DF, QD
     Route: 061
  5. ITRACONAZOLE. [Concomitant]
     Active Substance: ITRACONAZOLE
     Indication: ACANTHAMOEBA KERATITIS
     Dosage: 1 DF, BID
     Route: 048
  6. GENTAMICIN. [Suspect]
     Active Substance: GENTAMICIN
     Indication: ACANTHAMOEBA KERATITIS
     Dosage: 6 DF, BID
     Route: 065
  7. GENTAMICIN. [Suspect]
     Active Substance: GENTAMICIN
     Indication: BACTERIAL INFECTION

REACTIONS (5)
  - Ulcerative keratitis [Recovered/Resolved with Sequelae]
  - Toxicity to various agents [None]
  - Condition aggravated [Recovered/Resolved with Sequelae]
  - Corneal epithelium defect [Recovered/Resolved with Sequelae]
  - Corneal leukoma [Recovered/Resolved with Sequelae]
